FAERS Safety Report 22067359 (Version 1)
Quarter: 2023Q1

REPORT INFORMATION
  Report Type: Spontaneous
  Country: GB (occurrence: None)
  Receive Date: 20230307
  Receipt Date: 20230307
  Transmission Date: 20230417
  Serious: Yes (Other)
  Sender: FDA-Public Use
  Company Number: None

PATIENT
  Sex: Female

DRUGS (1)
  1. METHOTREXATE [Suspect]
     Active Substance: METHOTREXATE
     Indication: Psoriatic arthropathy
     Route: 065
     Dates: start: 20230109

REACTIONS (7)
  - Post viral fatigue syndrome [Unknown]
  - Optic neuritis [Unknown]
  - Visual field defect [Unknown]
  - Migraine [Not Recovered/Not Resolved]
  - Disturbance in attention [Not Recovered/Not Resolved]
  - Fatigue [Unknown]
  - Headache [Unknown]

NARRATIVE: CASE EVENT DATE: 20230109
